FAERS Safety Report 9997678 (Version 1)
Quarter: 2014Q1

REPORT INFORMATION
  Report Type: Spontaneous
  Country: US (occurrence: None)
  Receive Date: 20140225
  Receipt Date: 20140225
  Transmission Date: 20141002
  Serious: Yes (Other)
  Sender: FDA-Public Use
  Company Number: 2013-073

PATIENT
  Age: 26 Year
  Sex: Female
  Weight: 66.2 kg

DRUGS (12)
  1. PRIALT (ZICONOTIDE) INTRATHECAL INFUSION [Suspect]
     Indication: POST LAMINECTOMY SYNDROME
     Route: 037
     Dates: start: 20120315
  2. PRIALT (ZICONOTIDE) INTRATHECAL INFUSION [Suspect]
     Indication: POST LAMINECTOMY SYNDROME
     Route: 037
     Dates: start: 20120315
  3. PRIALT (ZICONOTIDE) INTRATHECAL INFUSION [Suspect]
     Indication: POST LAMINECTOMY SYNDROME
     Route: 037
     Dates: start: 20120315
  4. PRIALT (ZICONOTIDE) INTRATHECAL INFUSION [Suspect]
     Indication: POST LAMINECTOMY SYNDROME
     Route: 037
     Dates: start: 20120315
  5. FENTANYL (FENTANYL CITRATE) INJECTION [Suspect]
     Indication: POST LAMINECTOMY SYNDROME
     Route: 037
  6. FENTANYL (FENTANYL CITRATE) INJECTION [Suspect]
     Indication: POST LAMINECTOMY SYNDROME
     Route: 037
  7. FENTANYL (FENTANYL CITRATE) INJECTION [Suspect]
     Indication: LUMBAR RADICULOPATHY
     Route: 037
  8. BUPIVACAINE HYDROCHLORIDE (BUPIVACAINE HYDROCHLORIDE) INJECTION [Suspect]
     Indication: POST LAMINECTOMY SYNDROME
     Route: 037
  9. BUPIVACAINE HYDROCHLORIDE (BUPIVACAINE HYDROCHLORIDE) INJECTION [Suspect]
     Indication: POST LAMINECTOMY SYNDROME
     Route: 037
  10. BUPIVACAINE HYDROCHLORIDE (BUPIVACAINE HYDROCHLORIDE) INJECTION [Suspect]
     Indication: NEURALGIA
     Route: 037
  11. BUPIVACAINE HYDROCHLORIDE (BUPIVACAINE HYDROCHLORIDE) INJECTION [Suspect]
     Indication: LUMBAR RADICULOPATHY
     Route: 037
  12. VICODIN HP (HYDROCODONE BITARTRATE, PARACETAMOL) [Concomitant]

REACTIONS (5)
  - Hallucination [None]
  - Activities of daily living impaired [None]
  - Burning sensation [None]
  - Amnesia [None]
  - Delirium [None]
